FAERS Safety Report 24795093 (Version 2)
Quarter: 2025Q3

REPORT INFORMATION
  Report Type: Report from Study
  Country: US (occurrence: US)
  Receive Date: 20241231
  Receipt Date: 20250803
  Transmission Date: 20251021
  Serious: Yes (Other)
  Sender: ALEXION PHARMACEUTICALS
  Company Number: US-AstraZeneca-2023A001202

PATIENT
  Sex: Female

DRUGS (1)
  1. OSIMERTINIB [Suspect]
     Active Substance: OSIMERTINIB
     Indication: Bronchial carcinoma
     Dosage: 80 MILLIGRAM, QD
     Dates: start: 202206

REACTIONS (2)
  - Ascites [Unknown]
  - Thrombosis [Unknown]
